FAERS Safety Report 4819146-9 (Version None)
Quarter: 2005Q4

REPORT INFORMATION
  Report Type: 
  Country: None (occurrence: None)
  Receive Date: 20051101
  Receipt Date: 20051017
  Transmission Date: 20060501
  Serious: Yes (Hospitalization)
  Sender: FDA-Public Use
  Company Number: 2005RR-00985

PATIENT
  Age: 92 Year
  Sex: Male

DRUGS (14)
  1. ASPIRIN [Suspect]
     Indication: ATRIAL FIBRILLATION
     Dosage: 75 MG, QS, ORAL
     Route: 048
     Dates: end: 20050920
  2. ATORVASTATIN CALCIUM [Concomitant]
  3. BUMETANIDE [Concomitant]
  4. CO-CODDAMOL [Concomitant]
  5. DIGOXIN [Concomitant]
  6. EXAMETAZAMINE [Concomitant]
  7. FINASTERIDE [Concomitant]
  8. TAMSULOSIN [Concomitant]
  9. GLICLAZIDE [Concomitant]
  10. QVAR [Concomitant]
  11. SALBUTAMOL TABELTS BP 4 MG (SALBUTAMOL) [Concomitant]
  12. TEMAZEPAM [Concomitant]
  13. GAVISCON [Concomitant]
  14. MANEVAC [Concomitant]

REACTIONS (3)
  - DUODENAL ULCER [None]
  - DYSPNOEA [None]
  - LETHARGY [None]
